FAERS Safety Report 16803613 (Version 1)
Quarter: 2019Q3

REPORT INFORMATION
  Report Type: Spontaneous
  Country: SE (occurrence: SE)
  Receive Date: 20190913
  Receipt Date: 20190913
  Transmission Date: 20191005
  Serious: Yes (Hospitalization)
  Sender: FDA-Public Use
  Company Number: SE-TEVA-2019-SE-1106000

PATIENT
  Age: 41 Year
  Sex: Female

DRUGS (2)
  1. LERGIGAN (PROMETHAZINE HYDROCHLORIDE) [Suspect]
     Active Substance: PROMETHAZINE HYDROCHLORIDE
     Dosage: UPP TILL 30-40
     Route: 048
     Dates: start: 20190511, end: 20190511
  2. OXASCAND [Suspect]
     Active Substance: OXAZEPAM
     Dosage: 5 ST
     Route: 048
     Dates: start: 20190511, end: 20190511

REACTIONS (4)
  - Intentional overdose [Unknown]
  - Somnolence [Unknown]
  - Intentional self-injury [Unknown]
  - Tachycardia [Unknown]

NARRATIVE: CASE EVENT DATE: 20190511
